FAERS Safety Report 10166497 (Version 1)
Quarter: 2014Q2

REPORT INFORMATION
  Report Type: Spontaneous
  Country: US (occurrence: US)
  Receive Date: 20140512
  Receipt Date: 20140512
  Transmission Date: 20141212
  Serious: No
  Sender: FDA-Public Use
  Company Number: US-MYLANLABS-2014S1008837

PATIENT
  Age: 55 Year
  Sex: Female
  Weight: 61.24 kg

DRUGS (2)
  1. MORPHINE SULFATE EXTENDED-RELEASE TABLETS [Suspect]
     Indication: NECK PAIN
     Route: 048
     Dates: start: 20140315
  2. MORPHINE SULFATE EXTENDED-RELEASE TABLETS [Suspect]
     Indication: BACK PAIN
     Route: 048
     Dates: start: 20140315

REACTIONS (5)
  - Nausea [Not Recovered/Not Resolved]
  - Cold sweat [Not Recovered/Not Resolved]
  - Flushing [Not Recovered/Not Resolved]
  - Hyperhidrosis [Not Recovered/Not Resolved]
  - Fatigue [Not Recovered/Not Resolved]
